FAERS Safety Report 12047049 (Version 2)
Quarter: 2016Q2

REPORT INFORMATION
  Report Type: Spontaneous
  Country: US (occurrence: US)
  Receive Date: 20160209
  Receipt Date: 20160418
  Transmission Date: 20160815
  Serious: Yes (Other)
  Sender: FDA-Public Use
  Company Number: US-BEH-2016058413

PATIENT
  Age: 54 Year
  Sex: Female
  Weight: 72 kg

DRUGS (24)
  1. DULERA [Concomitant]
     Active Substance: FORMOTEROL FUMARATE DIHYDRATE\MOMETASONE FUROATE
  2. GLIPIZIDE. [Concomitant]
     Active Substance: GLIPIZIDE
  3. XANAX [Concomitant]
     Active Substance: ALPRAZOLAM
  4. IPRATROPIUM BR [Concomitant]
  5. CITALOPRAM [Concomitant]
     Active Substance: CITALOPRAM HYDROBROMIDE
  6. MIRALAX [Concomitant]
     Active Substance: POLYETHYLENE GLYCOL 3350
  7. XOLAIR [Concomitant]
     Active Substance: OMALIZUMAB
  8. PREDNISONE. [Concomitant]
     Active Substance: PREDNISONE
  9. FLUNISOLIDE. [Concomitant]
     Active Substance: FLUNISOLIDE
  10. HIZENTRA [Suspect]
     Active Substance: HUMAN IMMUNOGLOBULIN G
     Route: 058
  11. OMEPRAZOLE. [Concomitant]
     Active Substance: OMEPRAZOLE
  12. ACETAMINOPHEN. [Concomitant]
     Active Substance: ACETAMINOPHEN
  13. GEMFIBROZIL. [Concomitant]
     Active Substance: GEMFIBROZIL
  14. A-Z MULTIVITAMIN [Concomitant]
  15. SINGULAIR [Concomitant]
     Active Substance: MONTELUKAST SODIUM
  16. ALLEGRA [Concomitant]
     Active Substance: FEXOFENADINE HYDROCHLORIDE
  17. HIZENTRA [Suspect]
     Active Substance: HUMAN IMMUNOGLOBULIN G
     Indication: IMMUNODEFICIENCY COMMON VARIABLE
     Route: 058
  18. LIDOCAINE/PRILOCAINE [Concomitant]
  19. EPIPEN [Concomitant]
     Active Substance: EPINEPHRINE
  20. SIMVASTATIN. [Concomitant]
     Active Substance: SIMVASTATIN
  21. CINNAMON. [Concomitant]
     Active Substance: CINNAMON
  22. DIPHENHYDRAMINE. [Concomitant]
     Active Substance: DIPHENHYDRAMINE
  23. OXYGEN. [Concomitant]
     Active Substance: OXYGEN
  24. ALBUTEROL. [Concomitant]
     Active Substance: ALBUTEROL

REACTIONS (1)
  - Ankle fracture [Unknown]

NARRATIVE: CASE EVENT DATE: 20160116
